FAERS Safety Report 4713995-3 (Version None)
Quarter: 2005Q3

REPORT INFORMATION
  Report Type: 
  Country: None (occurrence: None)
  Receive Date: 20050714
  Receipt Date: 20050707
  Transmission Date: 20060218
  Serious: Yes (Hospitalization)
  Sender: FDA-Public Use
  Company Number: DE-BOEHRINGER INGELHEIM PHARMACEUTICALS, INC.-2005-DE-02681DE

PATIENT
  Sex: Female

DRUGS (2)
  1. MOBEC 15 MG TABLETTEN [Suspect]
     Route: 048
  2. VERTIGO VOMEX SR [Suspect]
     Route: 048

REACTIONS (3)
  - DRUG ABUSER [None]
  - SOMNOLENCE [None]
  - SUICIDE ATTEMPT [None]
